FAERS Safety Report 8065712-X (Version None)
Quarter: 2011Q4

REPORT INFORMATION
  Report Type: 
  Country: None (occurrence: None)
  Receive Date: 20111221
  Receipt Date: 20111007
  Transmission Date: 20120403
  Serious: Yes (Other)
  Sender: FDA-Public Use
  Company Number: PHEH2011US06285

PATIENT
  Age: 40 Year
  Sex: Male
  Weight: 67.6 kg

DRUGS (1)
  1. EXJADE [Suspect]
     Indication: SICKLE CELL ANAEMIA
     Dosage: 2000MG, QD, ORAL
     Route: 048
     Dates: start: 20061107

REACTIONS (1)
  - RENAL FAILURE [None]
